FAERS Safety Report 12680525 (Version 1)
Quarter: 2016Q3

REPORT INFORMATION
  Report Type: Report from Study
  Country: JP (occurrence: JP)
  Receive Date: 20160824
  Receipt Date: 20160824
  Transmission Date: 20161109
  Serious: Yes (Death, Hospitalization)
  Sender: FDA-Public Use
  Company Number: PHHO2012JP009229

PATIENT
  Age: 62 Year
  Sex: Female
  Weight: 47 kg

DRUGS (16)
  1. AFINITOR [Suspect]
     Active Substance: EVEROLIMUS
     Indication: BREAST CANCER
     Dosage: 5 MG, QD
     Route: 048
     Dates: start: 20120621, end: 20120805
  2. BAKTAR [Concomitant]
     Active Substance: SULFAMETHOXAZOLE\TRIMETHOPRIM
     Dosage: 1 DF, (4DF AND 1DF)
     Route: 048
     Dates: start: 20120824
  3. COMPARATOR VINORELBINE [Suspect]
     Active Substance: VINORELBINE TARTRATE
     Dosage: UNK
     Route: 042
     Dates: end: 20120730
  4. COMPARATOR TRASTUZUMAB [Suspect]
     Active Substance: TRASTUZUMAB
     Dosage: UNK
     Route: 042
     Dates: end: 20120806
  5. BROCIN [Concomitant]
     Dosage: 4 DF, UNK
     Route: 048
     Dates: start: 20120807, end: 20120823
  6. BIOFERMIN [Concomitant]
     Active Substance: BACILLUS SUBTILIS\LACTOBACILLUS ACIDOPHILUS\STREPTOCOCCUS FAECAIS
     Dosage: 3 DF, UNK
     Route: 048
  7. COMPARATOR TRASTUZUMAB [Suspect]
     Active Substance: TRASTUZUMAB
     Indication: BREAST CANCER METASTATIC
     Dosage: UNK
     Route: 042
     Dates: start: 20120319, end: 20120618
  8. COMPARATOR VINORELBINE [Suspect]
     Active Substance: VINORELBINE TARTRATE
     Indication: BREAST CANCER METASTATIC
     Dosage: UNK
     Route: 042
     Dates: start: 20120319, end: 20120618
  9. SAIREI-TO [Concomitant]
     Active Substance: UNSPECIFIED INGREDIENT
     Dosage: 3 DF, UNK
     Route: 048
     Dates: start: 20111226
  10. FAMOTIDINE. [Concomitant]
     Active Substance: FAMOTIDINE
     Dosage: 1 DF, UNK
     Route: 048
     Dates: start: 20120516
  11. GASTER [Concomitant]
     Active Substance: FAMOTIDINE
     Dosage: 1 DF, UNK
     Route: 048
     Dates: start: 20110516
  12. CODEINE PHOSPHATE [Concomitant]
     Active Substance: CODEINE PHOSPHATE
     Dosage: 80 MG, UNK
     Route: 048
     Dates: start: 20110411
  13. AFINITOR [Suspect]
     Active Substance: EVEROLIMUS
     Indication: BREAST CANCER METASTATIC
     Dosage: 5 MG, QD
     Route: 048
     Dates: start: 20120319, end: 20120618
  14. MAGMITT [Concomitant]
     Active Substance: MAGNESIUM OXIDE
     Dosage: 6 DF, UNK
     Route: 048
     Dates: start: 20110501
  15. KLARICID [Concomitant]
     Active Substance: CLARITHROMYCIN
     Dosage: 400 ML, UNK
     Route: 048
     Dates: start: 20120907
  16. LOXOPROFEN [Concomitant]
     Active Substance: LOXOPROFEN
     Dosage: 3 DF, UNK
     Route: 048
     Dates: start: 20120521

REACTIONS (3)
  - Interstitial lung disease [Fatal]
  - Metastases to central nervous system [Fatal]
  - Haematochezia [Recovered/Resolved]

NARRATIVE: CASE EVENT DATE: 20120613
